FAERS Safety Report 5748827-8 (Version None)
Quarter: 2008Q2

REPORT INFORMATION
  Report Type: 
  Country: None (occurrence: None)
  Receive Date: 20080522
  Receipt Date: 20080505
  Transmission Date: 20081010
  Serious: Yes (Other)
  Sender: FDA-Public Use
  Company Number: 2008AL003371

PATIENT
  Sex: Female

DRUGS (1)
  1. DIGOXIN [Suspect]
     Dosage: YEARS

REACTIONS (2)
  - ARRHYTHMIA [None]
  - CARDIAC FAILURE [None]
